FAERS Safety Report 6072641-X (Version None)
Quarter: 2009Q1

REPORT INFORMATION
  Report Type: 
  Country: None (occurrence: None)
  Receive Date: 20090210
  Receipt Date: 20090130
  Transmission Date: 20090719
  Serious: Yes (Death)
  Sender: FDA-Public Use
  Company Number: GB-PFIZER INC-2008101154

PATIENT

DRUGS (16)
  1. GABAPENTIN [Suspect]
     Route: 048
     Dates: start: 20080811
  2. AMINOPHYLLINE [Suspect]
     Route: 048
     Dates: start: 20080810
  3. CARBOCISTEINE [Suspect]
     Route: 048
     Dates: start: 20080810
  4. SIMVASTATIN [Suspect]
     Route: 048
     Dates: start: 20060101
  5. AMITRIPTYLINE HCL [Concomitant]
  6. ASPIRIN [Concomitant]
  7. DILTIAZEM [Concomitant]
  8. DIPYRIDAMOLE [Concomitant]
  9. ENALAPRIL [Concomitant]
  10. OMEPRAZOLE [Concomitant]
  11. PARACETAMOL [Concomitant]
  12. PHYLLOCONTIN [Concomitant]
  13. QVAR 40 [Concomitant]
  14. SALBUTAMOL [Concomitant]
  15. TIOTROPIUM BROMIDE [Concomitant]
  16. TRAMADOL HCL [Concomitant]

REACTIONS (1)
  - RENAL FAILURE [None]
